FAERS Safety Report 5944584-0 (Version None)
Quarter: 2008Q4

REPORT INFORMATION
  Report Type: 
  Country: None (occurrence: None)
  Receive Date: 20081107
  Receipt Date: 20081028
  Transmission Date: 20090506
  Serious: Yes (Other)
  Sender: FDA-Public Use
  Company Number: GB-JNJFOC-20081007073

PATIENT
  Age: 69 Year
  Sex: Female

DRUGS (9)
  1. REMICADE [Suspect]
     Route: 042
  2. REMICADE [Suspect]
     Indication: RHEUMATOID ARTHRITIS
     Route: 042
  3. AMITRIPTYLINE HCL [Concomitant]
  4. CELEBREX [Concomitant]
  5. ACETAMINOPHEN W/ PROPOXYPHENE HCL [Concomitant]
  6. FOLIC ACID [Concomitant]
  7. HRT [Concomitant]
  8. METHOTREXATE [Concomitant]
  9. LANSOPRAZOLE [Concomitant]

REACTIONS (1)
  - BREAST CANCER [None]
